FAERS Safety Report 4355581-3 (Version None)
Quarter: 2004Q2

REPORT INFORMATION
  Report Type: 
  Country: None (occurrence: None)
  Receive Date: 20040510
  Receipt Date: 20031118
  Transmission Date: 20050107
  Serious: Yes (Hospitalization)
  Sender: FDA-Public Use
  Company Number: FR-GLAXOSMITHKLINE-B0315354A

PATIENT
  Age: 41 Year
  Sex: Male

DRUGS (2)
  1. ZYBAN [Suspect]
     Dosage: 150MG PER DAY
     Route: 048
     Dates: start: 20030905, end: 20031020
  2. CORTICOID OINTMENT [Concomitant]
     Indication: DERMATITIS
     Route: 062

REACTIONS (7)
  - ANXIETY [None]
  - DELIRIUM [None]
  - DEPRESSION [None]
  - HALLUCINATION [None]
  - PARANOIA [None]
  - PERSECUTORY DELUSION [None]
  - PSYCHOTIC DISORDER [None]
